FAERS Safety Report 6216024-8 (Version None)
Quarter: 2009Q2

REPORT INFORMATION
  Report Type: 
  Country: None (occurrence: None)
  Receive Date: 20090605
  Receipt Date: 20090525
  Transmission Date: 20091009
  Serious: Yes (Other)
  Sender: FDA-Public Use
  Company Number: PHHY2009DE13173

PATIENT
  Age: 48 Year
  Sex: Female

DRUGS (3)
  1. LEPONEX [Suspect]
     Indication: SCHIZOPHRENIA
     Dosage: 200 MG/DAY
     Route: 048
  2. LEPONEX [Suspect]
     Dosage: 50 MG DAILY
     Dates: end: 20090519
  3. NOVALGIN [Concomitant]

REACTIONS (6)
  - ABDOMINAL OPERATION [None]
  - DRUG WITHDRAWAL SYNDROME [None]
  - FEELING ABNORMAL [None]
  - LISTLESS [None]
  - RESPIRATORY DISORDER [None]
  - URINARY TRACT INFECTION [None]
